FAERS Safety Report 9626036 (Version 1)
Quarter: 2013Q4

REPORT INFORMATION
  Report Type: Spontaneous
  Country: US (occurrence: None)
  Receive Date: 20131015
  Receipt Date: 20131015
  Transmission Date: 20140711
  Serious: Yes (Other)
  Sender: FDA-Public Use
  Company Number: None

PATIENT
  Age: 65 Year
  Sex: Male
  Weight: 90.72 kg

DRUGS (1)
  1. SIMVASTATIN [Suspect]
     Indication: BLOOD CHOLESTEROL INCREASED
     Dosage: 1 PILL
     Route: 048

REACTIONS (6)
  - Myalgia [None]
  - Arthralgia [None]
  - Back pain [None]
  - Decreased activity [None]
  - Sleep disorder [None]
  - Quality of life decreased [None]
